FAERS Safety Report 10244834 (Version 1)
Quarter: 2014Q2

REPORT INFORMATION
  Report Type: Spontaneous
  Country: FR (occurrence: FR)
  Receive Date: 20140618
  Receipt Date: 20140618
  Transmission Date: 20141212
  Serious: Yes (Other)
  Sender: FDA-Public Use
  Company Number: FR-DSJP-DSE-2014-111772

PATIENT
  Sex: 0

DRUGS (2)
  1. SEVIKAR 20 MG/ 5 MG [Suspect]
     Indication: HYPERTENSION
     Dosage: 20/5 MG, QD
     Route: 048
     Dates: start: 20130902, end: 20140420
  2. KLIPAL                             /00116401/ [Concomitant]
     Indication: PAIN
     Dosage: UNK, AS NEEDED
     Dates: start: 20130328, end: 20140412

REACTIONS (4)
  - Inflammatory bowel disease [Recovering/Resolving]
  - Rectal haemorrhage [Recovering/Resolving]
  - Diarrhoea [Recovering/Resolving]
  - Abdominal pain [Recovering/Resolving]
